FAERS Safety Report 4422867-3 (Version None)
Quarter: 2004Q3

REPORT INFORMATION
  Report Type: 
  Country: None (occurrence: None)
  Receive Date: 20040811
  Receipt Date: 20040730
  Transmission Date: 20050211
  Serious: Yes (Disabling)
  Sender: FDA-Public Use
  Company Number: US-JNJFOC-20040800232

PATIENT
  Sex: Male
  Weight: 92.53 kg

DRUGS (14)
  1. INFLIXIMAB [Suspect]
     Route: 042
  2. INFLIXIMAB [Suspect]
     Route: 042
  3. INFLIXIMAB [Suspect]
     Route: 042
  4. INFLIXIMAB [Suspect]
     Route: 042
  5. INFLIXIMAB [Suspect]
     Route: 042
  6. INFLIXIMAB [Suspect]
     Route: 042
  7. INFLIXIMAB [Suspect]
     Route: 042
  8. INFLIXIMAB [Suspect]
     Route: 042
  9. INFLIXIMAB [Suspect]
     Route: 042
  10. INFLIXIMAB [Suspect]
     Route: 042
  11. INFLIXIMAB [Suspect]
     Indication: CROHN'S DISEASE
     Route: 042
  12. MERCAPTOPURINE [Suspect]
     Indication: CROHN'S DISEASE
  13. ACETAMINOPHEN [Concomitant]
     Indication: PREMEDICATION
  14. ANTI-HISTAMINE TAB [Concomitant]
     Indication: PREMEDICATION

REACTIONS (2)
  - ARTHRALGIA [None]
  - POLYARTHRITIS [None]
